FAERS Safety Report 6549207-8 (Version None)
Quarter: 2010Q1

REPORT INFORMATION
  Report Type: 
  Country: None (occurrence: None)
  Receive Date: 20100125
  Receipt Date: 20100111
  Transmission Date: 20100710
  Serious: Yes (Hospitalization)
  Sender: FDA-Public Use
  Company Number: GB-MEDIMMUNE-MEDI-0010267

PATIENT

DRUGS (2)
  1. SYNAGIS [Suspect]
     Route: 030
  2. OXYGEN [Concomitant]

REACTIONS (3)
  - BRONCHIOLITIS [None]
  - RESPIRATORY SYNCYTIAL VIRUS BRONCHIOLITIS [None]
  - RESPIRATORY TRACT INFECTION [None]
